FAERS Safety Report 9618384 (Version 1)
Quarter: 2013Q4

REPORT INFORMATION
  Report Type: Spontaneous
  Country: US (occurrence: US)
  Receive Date: 20131014
  Receipt Date: 20131014
  Transmission Date: 20140711
  Serious: No
  Sender: FDA-Public Use
  Company Number: US-B.I. PHARMACEUTICALS,INC./RIDGEFIELD-2013-BI-31078BP

PATIENT
  Age: 76 Year
  Sex: Male
  Weight: 107 kg

DRUGS (7)
  1. SPIRIVA [Suspect]
     Indication: LUNG INFECTION
     Dosage: 18 MCG
     Route: 055
     Dates: start: 201307
  2. COMBIVENT [Suspect]
     Indication: LUNG INFECTION
     Dosage: STRENGTH: 20 MCG / 100 MCG; DAILY DOSE: 80 MCG/ 400 MCG
     Route: 055
     Dates: start: 201307
  3. OMEPRAZOLE [Concomitant]
     Dosage: 20 MG
     Route: 048
  4. SYMBICORT [Concomitant]
     Indication: LUNG INFECTION
     Route: 055
  5. LORAZEPAM [Concomitant]
     Indication: ANXIETY
     Dosage: 4 MG
     Route: 048
  6. ATORVASTATIN [Concomitant]
     Dosage: 40 MG
     Route: 048
  7. ASPIRIN [Concomitant]
     Dosage: 81 MG
     Route: 048

REACTIONS (3)
  - Dyspnoea [Not Recovered/Not Resolved]
  - Off label use [Not Recovered/Not Resolved]
  - Off label use [Not Recovered/Not Resolved]
